FAERS Safety Report 8088332-X (Version None)
Quarter: 2012Q1

REPORT INFORMATION
  Report Type: 
  Country: None (occurrence: None)
  Receive Date: 20120128
  Receipt Date: 20110503
  Transmission Date: 20120608
  Serious: No
  Sender: FDA-Public Use
  Company Number: US-ABBOTT-11P-163-0723208-00

PATIENT
  Age: 44 Year
  Sex: Female

DRUGS (4)
  1. FLAGYL [Concomitant]
     Indication: PRODUCT USED FOR UNKNOWN INDICATION
  2. HUMIRA [Suspect]
     Indication: CROHN'S DISEASE
     Dates: start: 20101101, end: 20110313
  3. HUMIRA [Suspect]
  4. HUMIRA [Suspect]
     Dates: start: 20110427, end: 20110427

REACTIONS (3)
  - ANORECTAL DISCOMFORT [None]
  - ABDOMINAL PAIN [None]
  - ABSCESS [None]
